FAERS Safety Report 8794781 (Version 1)
Quarter: 2012Q4

REPORT INFORMATION
  Report Type: 
  Country: US (occurrence: US)
  Receive Date: 20120917
  Receipt Date: 20120917
  Transmission Date: 20130627
  Serious: Yes (Other)
  Sender: FDA-Public Use
  Company Number: US-ROCHE-1122360

PATIENT
  Age: 69 Year
  Sex: Female

DRUGS (6)
  1. RITUXAN [Suspect]
     Indication: B-CELL LYMPHOMA
     Route: 065
     Dates: start: 2005
  2. DOXORUBICIN [Suspect]
     Indication: B-CELL LYMPHOMA
     Route: 065
     Dates: start: 2005
  3. VINCRISTINE [Suspect]
     Indication: B-CELL LYMPHOMA
     Route: 065
     Dates: start: 2005
  4. DIOVAN [Concomitant]
     Indication: BLOOD PRESSURE
  5. CYCLOPHOSPHAMIDE [Concomitant]
     Indication: B-CELL LYMPHOMA
     Route: 065
     Dates: start: 2005
  6. PREDNISOLONE [Concomitant]
     Indication: B-CELL LYMPHOMA
     Route: 065
     Dates: start: 2005

REACTIONS (7)
  - Alanine aminotransferase increased [Not Recovered/Not Resolved]
  - Aspartate aminotransferase increased [Not Recovered/Not Resolved]
  - Blood bilirubin increased [Unknown]
  - Blood pressure increased [Not Recovered/Not Resolved]
  - Blood lactate dehydrogenase increased [Recovered/Resolved]
  - Cough [Not Recovered/Not Resolved]
  - Alopecia [Recovered/Resolved]
